FAERS Safety Report 6035757-X (Version None)
Quarter: 2009Q1

REPORT INFORMATION
  Report Type: 
  Country: None (occurrence: None)
  Receive Date: 20090112
  Receipt Date: 20090112
  Transmission Date: 20090719
  Serious: Yes (Hospitalization)
  Sender: FDA-Public Use
  Company Number: None

PATIENT
  Age: 12 Year
  Sex: Male
  Weight: 40.8237 kg

DRUGS (2)
  1. MOLINDONE HCL [Suspect]
     Indication: AGGRESSION
     Dosage: 10MG TWICE A DAY PO
     Route: 048
     Dates: start: 20080717, end: 20081120
  2. QUETIAPINE 50MG ASTRA/ZENECA [Suspect]
     Indication: AGGRESSION
     Dosage: 50MG THREE TIMES A DAY PO
     Route: 048
     Dates: start: 20081109, end: 20081120

REACTIONS (5)
  - DISORIENTATION [None]
  - DYSKINESIA [None]
  - HYPOTENSION [None]
  - SEDATION [None]
  - VOMITING [None]
